FAERS Safety Report 10706942 (Version 4)
Quarter: 2016Q2

REPORT INFORMATION
  Report Type: Spontaneous
  Country: US (occurrence: US)
  Receive Date: 20150113
  Receipt Date: 20160425
  Transmission Date: 20160815
  Serious: Yes (Hospitalization, Other)
  Sender: FDA-Public Use
  Company Number: US-PFIZER INC-2015008447

PATIENT
  Age: 82 Year
  Sex: Female
  Weight: 67 kg

DRUGS (1)
  1. PREMARIN [Suspect]
     Active Substance: ESTROGENS, CONJUGATED
     Dosage: UNK, WEEKLY (LESS THAN 1 IN OF PREMARIN ONCE A WEEK)
     Dates: start: 200406

REACTIONS (2)
  - Product quality issue [Recovered/Resolved]
  - Cystitis [Recovered/Resolved]

NARRATIVE: CASE EVENT DATE: 2004
